FAERS Safety Report 13830046 (Version 1)
Quarter: 2017Q3

REPORT INFORMATION
  Report Type: Report from Study
  Country: ZA (occurrence: ZA)
  Receive Date: 20170803
  Receipt Date: 20170803
  Transmission Date: 20171127
  Serious: Yes (Death, Hospitalization, Other)
  Sender: FDA-Public Use
  Company Number: ZA-AMGEN-ZAFSL2017117268

PATIENT
  Age: 55 Year
  Sex: Male

DRUGS (1)
  1. ARANESP [Suspect]
     Active Substance: DARBEPOETIN ALFA
     Indication: CHRONIC KIDNEY DISEASE
     Dosage: 100 MUG, QWK
     Route: 058
     Dates: start: 201607, end: 20170727

REACTIONS (3)
  - Cerebrovascular accident [Fatal]
  - Malaise [Unknown]
  - Neoplasm malignant [Unknown]
